FAERS Safety Report 16325006 (Version 1)
Quarter: 2019Q2

REPORT INFORMATION
  Report Type: Spontaneous
  Country: GB (occurrence: GB)
  Receive Date: 20190517
  Receipt Date: 20190517
  Transmission Date: 20190711
  Serious: Yes (Disabling)
  Sender: FDA-Public Use
  Company Number: GB-TEVA-2019-GB-1049275

PATIENT
  Age: 62 Year
  Sex: Female
  Weight: 112 kg

DRUGS (18)
  1. AMITRIPTYLINE HYDROCHLORIDE. [Concomitant]
     Active Substance: AMITRIPTYLINE HYDROCHLORIDE
     Dosage: 1 -3 AT NIGHT OR INCREASING AS NECESSARY
     Dates: start: 20180731
  2. DOXYCYCLINE. [Concomitant]
     Active Substance: DOXYCYCLINE
     Dosage: 2 ON FIRST DOSE,1DF FOR 1 DAY
     Dates: start: 20190410
  3. CLARITHROMYCIN. [Suspect]
     Active Substance: CLARITHROMYCIN
     Dosage: 1000 MG PER 1 DAY
     Dates: start: 20190409
  4. SIMVASTATIN. [Concomitant]
     Active Substance: SIMVASTATIN
     Dosage: NIGHT 1 DF FOR 1 DAY
     Dates: start: 20180731
  5. FERROUS FUMARATE [Concomitant]
     Active Substance: FERROUS FUMARATE
     Dosage: 3DF FOR 1 DAY
     Dates: start: 20180731
  6. PARACETAMOL [Concomitant]
     Active Substance: ACETAMINOPHEN
     Dosage: TAKE ONE OR TWO TABLETS EVERY FOUR TO SIX HOURS
     Dates: start: 20180731
  7. AMOXICILLIN. [Concomitant]
     Active Substance: AMOXICILLIN
     Dosage: 3 DF FOR 1 DAY
     Dates: start: 20190402, end: 20190409
  8. CALCI-D [Concomitant]
     Dosage: TAKE ONE DAILY NOT ON FRIDAY, 6DF FOR 1 WEEK
     Dates: start: 20180731
  9. MICONAZOLE. [Concomitant]
     Active Substance: MICONAZOLE
     Dosage: APPLY 3 DF FOR 1 DAY
     Dates: start: 20190228, end: 20190328
  10. FOLIC ACID. [Concomitant]
     Active Substance: FOLIC ACID
     Dosage: 1 DAILY EXCEPT MONDAYS, 6 DF 1 WEEKS
     Dates: start: 20180731
  11. BENDROFLUMETHIAZIDE [Concomitant]
     Active Substance: BENDROFLUMETHIAZIDE
     Dosage: 1DF PER 1 DAY
     Dates: start: 20180731
  12. TRAMADOL. [Concomitant]
     Active Substance: TRAMADOL
     Dosage: TAKE 1 OR 2 UP TO 4 TIMES PER DAY
     Dates: start: 20180731
  13. ALLOPURINOL. [Concomitant]
     Active Substance: ALLOPURINOL
     Dosage: 1 DF FOR 1 DAY
     Dates: start: 20180830
  14. ALENDRONIC ACID [Concomitant]
     Active Substance: ALENDRONIC ACID
     Dosage: 30 MINUTES BEFORE FOOD REMAINING UPRIGHT
     Dates: start: 20180731
  15. CITALOPRAM [Concomitant]
     Active Substance: CITALOPRAM HYDROBROMIDE
     Dosage: 1 DF FOR 1 DAY
     Dates: start: 20180731
  16. SALBUTAMOL [Concomitant]
     Active Substance: ALBUTEROL
     Dosage: INHALE TWO PUFFS AS DIRECTED.
     Route: 055
     Dates: start: 20190402
  17. GLANDOSANE [Concomitant]
     Active Substance: CALCIUM\CARBOXYMETHYLCELLULOSE\DEVICE\MAGNESIUM\POTASSIUM\SODIUM CL\SORBITOL
     Dosage: USE AS DIRECTED
     Dates: start: 20180731
  18. LANSOPRAZOLE. [Concomitant]
     Active Substance: LANSOPRAZOLE
     Dosage: 2 DF FOR 1 DAY
     Dates: start: 20180731

REACTIONS (1)
  - Urticaria [Recovering/Resolving]

NARRATIVE: CASE EVENT DATE: 20190410
